FAERS Safety Report 6512426-0 (Version None)
Quarter: 2009Q4

REPORT INFORMATION
  Report Type: 
  Country: None (occurrence: None)
  Receive Date: 20091222
  Receipt Date: 20091009
  Transmission Date: 20100525
  Serious: Yes (Other)
  Sender: FDA-Public Use
  Company Number: SN-GILEAD-2009-0022474

PATIENT
  Sex: Female

DRUGS (2)
  1. ATRIPLA [Suspect]
     Indication: HIV INFECTION
     Route: 048
     Dates: start: 20090305, end: 20090317
  2. ATRIPLA [Suspect]
     Route: 048
     Dates: start: 20090319, end: 20090601

REACTIONS (1)
  - ABORTION SPONTANEOUS [None]
